FAERS Safety Report 21590027 (Version 1)
Quarter: 2022Q4

REPORT INFORMATION
  Report Type: Report from Study
  Country: CA (occurrence: CA)
  Receive Date: 20221114
  Receipt Date: 20221114
  Transmission Date: 20230113
  Serious: Yes (Other)
  Sender: FDA-Public Use
  Company Number: CA-JNJFOC-20221121250

PATIENT
  Age: 16 Year
  Sex: Female

DRUGS (1)
  1. REMICADE [Suspect]
     Active Substance: INFLIXIMAB
     Indication: Crohn^s disease
     Dosage: ON 08/NOV/2022, RECEIVED 2ND INFLIXIMAB, RECOMBINANT INFUSION OF 600 MG AND PARTIAL HARVEY-BRADSHAW
     Route: 042
     Dates: start: 20221024

REACTIONS (5)
  - Haematochezia [Unknown]
  - General physical health deterioration [Unknown]
  - Malaise [Unknown]
  - Abdominal pain [Unknown]
  - Diarrhoea [Unknown]

NARRATIVE: CASE EVENT DATE: 20221107
